FAERS Safety Report 10102176 (Version 2)
Quarter: 2014Q2

REPORT INFORMATION
  Report Type: Spontaneous
  Country: ES (occurrence: None)
  Receive Date: 20140422
  Receipt Date: 20140512
  Transmission Date: 20141212
  Serious: Yes (Other)
  Sender: FDA-Public Use
  Company Number: AUR-APL-2014-04718

PATIENT
  Age: 11 Year
  Sex: Female

DRUGS (1)
  1. MONTELUKAST (MONTELUKAST) [Suspect]
     Indication: ASTHMA EXERCISE INDUCED

REACTIONS (2)
  - Alice in wonderland syndrome [None]
  - Altered visual depth perception [None]
